FAERS Safety Report 7610510-1 (Version None)
Quarter: 2011Q3

REPORT INFORMATION
  Report Type: 
  Country: None (occurrence: None)
  Receive Date: 20110715
  Receipt Date: 20100920
  Transmission Date: 20111222
  Serious: Yes (Other)
  Sender: FDA-Public Use
  Company Number: US-BAYER-201026675NA

PATIENT
  Age: 47 Year
  Sex: Female
  Weight: 63.039 kg

DRUGS (6)
  1. YASMIN [Suspect]
     Indication: ACNE
  2. YASMIN [Suspect]
     Indication: PREMENSTRUAL SYNDROME
  3. YASMIN [Suspect]
     Indication: MENSTRUAL CYCLE MANAGEMENT
  4. YASMIN [Suspect]
     Indication: CONTRACEPTION
     Route: 048
     Dates: start: 20020604, end: 20040801
  5. SYNTHROID [Concomitant]
     Indication: HYPOTHYROIDISM
     Dosage: UNK
     Dates: start: 19930101
  6. PATANOL [Concomitant]
     Dosage: UNK
     Dates: start: 20050301, end: 20050601

REACTIONS (7)
  - DEPRESSION [None]
  - ORAL DISCOMFORT [None]
  - THALAMIC INFARCTION [None]
  - MEMORY IMPAIRMENT [None]
  - CEREBROVASCULAR DISORDER [None]
  - AMNESIA [None]
  - DYSGRAPHIA [None]
